FAERS Safety Report 9541544 (Version 1)
Quarter: 2013Q3

REPORT INFORMATION
  Report Type: Spontaneous
  Country: US (occurrence: None)
  Receive Date: 20130919
  Receipt Date: 20130919
  Transmission Date: 20140515
  Serious: Yes (Hospitalization)
  Sender: FDA-Public Use
  Company Number: None

PATIENT
  Age: 67 Year
  Sex: Male
  Weight: 75 kg

DRUGS (3)
  1. DAPTOMYCIN [Suspect]
     Indication: ABSCESS
     Dosage: 750 MG QD INTRAVENOUS
     Route: 042
     Dates: start: 20130702, end: 20130716
  2. DAPTOMYCIN [Suspect]
     Indication: SPINAL DISORDER
     Dosage: 750 MG QD INTRAVENOUS
     Route: 042
     Dates: start: 20130702, end: 20130716
  3. DAPTOMYCIN [Suspect]
     Indication: ENTEROCOCCAL INFECTION
     Dosage: 750 MG QD INTRAVENOUS
     Route: 042
     Dates: start: 20130702, end: 20130716

REACTIONS (2)
  - Dyspnoea [None]
  - Eosinophilic pneumonia [None]
